FAERS Safety Report 11471345 (Version 2)
Quarter: 2015Q3

REPORT INFORMATION
  Report Type: Spontaneous
  Country: US (occurrence: US)
  Receive Date: 20150903
  Receipt Date: 20150903
  Transmission Date: 20151125
  Serious: No
  Sender: FDA-Public Use
  Company Number: US-ELI_LILLY_AND_COMPANY-US201202002327

PATIENT
  Age: 41 Year
  Sex: Female

DRUGS (3)
  1. CYMBALTA [Suspect]
     Active Substance: DULOXETINE HYDROCHLORIDE
     Indication: DEPRESSION
     Dosage: 30 MG, UNK
     Dates: start: 201112, end: 201201
  2. VENTOLIN [Concomitant]
     Active Substance: ALBUTEROL SULFATE
  3. CYMBALTA [Suspect]
     Active Substance: DULOXETINE HYDROCHLORIDE
     Dosage: 60 MG, QD
     Dates: start: 201201, end: 20120201

REACTIONS (11)
  - Dysphoria [Not Recovered/Not Resolved]
  - Vertigo [Not Recovered/Not Resolved]
  - Headache [Not Recovered/Not Resolved]
  - Intentional product misuse [Unknown]
  - Somnolence [Unknown]
  - Drug withdrawal syndrome [Unknown]
  - Paraesthesia [Not Recovered/Not Resolved]
  - Crying [Not Recovered/Not Resolved]
  - Nausea [Not Recovered/Not Resolved]
  - Aura [Not Recovered/Not Resolved]
  - Insomnia [Not Recovered/Not Resolved]

NARRATIVE: CASE EVENT DATE: 20120201
